FAERS Safety Report 15877307 (Version 1)
Quarter: 2019Q1

REPORT INFORMATION
  Report Type: Spontaneous
  Country: US (occurrence: US)
  Receive Date: 20190128
  Receipt Date: 20190128
  Transmission Date: 20190417
  Serious: No
  Sender: FDA-Public Use
  Company Number: US-SA-2019SA019737

PATIENT
  Sex: Female

DRUGS (1)
  1. AUBAGIO [Suspect]
     Active Substance: TERIFLUNOMIDE
     Indication: PRODUCT USED FOR UNKNOWN INDICATION

REACTIONS (12)
  - Anal incontinence [Unknown]
  - Reading disorder [Unknown]
  - Hypoaesthesia [Unknown]
  - Sinus congestion [Unknown]
  - Memory impairment [Unknown]
  - Dysgeusia [Unknown]
  - Dysgraphia [Unknown]
  - Pain [Unknown]
  - Paraesthesia [Unknown]
  - Tremor [Unknown]
  - Influenza like illness [Unknown]
  - Urinary incontinence [Unknown]
